FAERS Safety Report 5310414-3 (Version None)
Quarter: 2007Q2

REPORT INFORMATION
  Report Type: 
  Country: None (occurrence: None)
  Receive Date: 20070427
  Receipt Date: 20070417
  Transmission Date: 20071010
  Serious: Yes (Other)
  Sender: FDA-Public Use
  Company Number: FR-JNJFOC-20070102214

PATIENT
  Age: 55 Year
  Sex: Female
  Weight: 83 kg

DRUGS (14)
  1. REMICADE [Suspect]
     Route: 042
  2. REMICADE [Suspect]
     Route: 042
  3. REMICADE [Suspect]
     Route: 042
  4. REMICADE [Suspect]
     Route: 042
  5. REMICADE [Suspect]
     Indication: PSORIATIC ARTHROPATHY
     Route: 042
  6. ARAVA [Suspect]
     Indication: DRUG USE FOR UNKNOWN INDICATION
  7. CORTANCYL [Concomitant]
     Dosage: DOSE: 1 AND 1/2
  8. ACTONEL [Concomitant]
     Dosage: DOSE: 35
  9. PROPOFOL [Concomitant]
     Dosage: DOSE: 4 TO 6 TABLETS
  10. LANZON [Concomitant]
     Dosage: DOSE: 30
  11. MODURETIC 5-50 [Concomitant]
  12. KALEORID [Concomitant]
     Dosage: DOSE: 1000
  13. DEBRIDAT [Concomitant]
     Dosage: DOSE: 100
  14. MOTILIUM [Concomitant]

REACTIONS (4)
  - DYSPNOEA [None]
  - EXTRASYSTOLES [None]
  - HYPERTENSION [None]
  - TACHYCARDIA [None]
